FAERS Safety Report 21971878 (Version 2)
Quarter: 2023Q1

REPORT INFORMATION
  Report Type: Spontaneous
  Country: US (occurrence: US)
  Receive Date: 20230209
  Receipt Date: 20230318
  Transmission Date: 20230418
  Serious: No
  Sender: FDA-Public Use
  Company Number: US-Ipsen Biopharmaceuticals, Inc.-2023-02221

PATIENT
  Sex: Male

DRUGS (8)
  1. SOMATULINE DEPOT [Suspect]
     Active Substance: LANREOTIDE ACETATE
     Indication: Carcinoid tumour
     Dosage: 120 MG 0.5 ML INJECT ONE SYRINGE UNDER THE SKIN EVERY 28 DAYS
     Route: 058
     Dates: start: 20221231
  2. ERYTHROMYCINE TAB 20 MG [Concomitant]
  3. ATIVAN TAB 1 MG [Concomitant]
  4. CYCLOBENZAPR TAB 10 MG [Concomitant]
  5. IBUPROFEN TAB 800 MG [Concomitant]
  6. OMEPRAZOL TAB 20 MG [Concomitant]
  7. PEPSID TAB 20 MG [Concomitant]
  8. ZENTAC 360 TAB 10 MG [Concomitant]

REACTIONS (2)
  - Diarrhoea [Unknown]
  - Drug ineffective [Unknown]
